FAERS Safety Report 5398667-7 (Version None)
Quarter: 2007Q3

REPORT INFORMATION
  Report Type: 
  Country: None (occurrence: None)
  Receive Date: 20070726
  Receipt Date: 20070501
  Transmission Date: 20080115
  Serious: No
  Sender: FDA-Public Use
  Company Number: US-AMGEN-KDL203696

PATIENT
  Age: 65 Year
  Sex: Female
  Weight: 117.1 kg

DRUGS (3)
  1. PROCRIT [Suspect]
     Indication: RENAL FAILURE CHRONIC
     Route: 058
     Dates: start: 20061002, end: 20061031
  2. PROCRIT [Suspect]
     Route: 058
     Dates: start: 20061031
  3. PROCRIT [Suspect]

REACTIONS (2)
  - RETICULOCYTE COUNT INCREASED [None]
  - THERAPEUTIC RESPONSE DECREASED [None]
